FAERS Safety Report 18451375 (Version 5)
Quarter: 2020Q4

REPORT INFORMATION
  Report Type: Spontaneous
  Country: BR (occurrence: BR)
  Receive Date: 20201102
  Receipt Date: 20201118
  Transmission Date: 20210114
  Serious: Yes (Disabling)
  Sender: FDA-Public Use
  Company Number: BR-BIOGEN-2018BI00677116

PATIENT
  Sex: Male

DRUGS (14)
  1. TECFIDERA [Suspect]
     Active Substance: DIMETHYL FUMARATE
     Route: 050
     Dates: start: 201812
  2. TECFIDERA [Suspect]
     Active Substance: DIMETHYL FUMARATE
     Route: 065
  3. FAMPYRA [Suspect]
     Active Substance: DALFAMPRIDINE
     Indication: GAIT DISTURBANCE
     Route: 050
  4. TECFIDERA [Suspect]
     Active Substance: DIMETHYL FUMARATE
     Indication: MULTIPLE SCLEROSIS
     Route: 050
     Dates: start: 2014
  5. TECFIDERA [Suspect]
     Active Substance: DIMETHYL FUMARATE
     Dosage: DURING TWO OR THREE MONTHS?STARTING DOSE
     Route: 065
     Dates: start: 201507
  6. FAMPYRA [Suspect]
     Active Substance: DALFAMPRIDINE
     Route: 048
     Dates: start: 2014
  7. TECFIDERA [Suspect]
     Active Substance: DIMETHYL FUMARATE
     Dosage: FREE SAMPLE?MAINTENANCE DOSE
     Route: 048
     Dates: start: 20150701
  8. TECFIDERA [Suspect]
     Active Substance: DIMETHYL FUMARATE
     Route: 048
  9. MACA PERUANA (LIPIDIUM MEYENII) [Concomitant]
     Indication: ERECTILE DYSFUNCTION
     Route: 065
  10. FAMPYRA [Suspect]
     Active Substance: DALFAMPRIDINE
     Route: 048
  11. TECFIDERA [Suspect]
     Active Substance: DIMETHYL FUMARATE
     Route: 050
     Dates: start: 2014, end: 201809
  12. TECFIDERA [Suspect]
     Active Substance: DIMETHYL FUMARATE
     Route: 048
     Dates: start: 201507
  13. TECFIDERA [Suspect]
     Active Substance: DIMETHYL FUMARATE
     Dosage: MAINTENANACE DOSE
     Route: 048
     Dates: start: 2014
  14. FAMPYRA [Suspect]
     Active Substance: DALFAMPRIDINE
     Route: 065
     Dates: start: 201506

REACTIONS (14)
  - Fatigue [Not Recovered/Not Resolved]
  - Balance disorder [Unknown]
  - Pruritus [Recovered/Resolved]
  - Ejaculation disorder [Not Recovered/Not Resolved]
  - Multiple sclerosis [Unknown]
  - Erectile dysfunction [Not Recovered/Not Resolved]
  - Headache [Recovered/Resolved]
  - Expired product administered [Unknown]
  - Muscular weakness [Not Recovered/Not Resolved]
  - Sexual dysfunction [Recovered/Resolved with Sequelae]
  - Flushing [Recovered/Resolved]
  - Gait disturbance [Not Recovered/Not Resolved]
  - Feeling hot [Recovered/Resolved]
  - Insomnia [Recovered/Resolved]

NARRATIVE: CASE EVENT DATE: 2014
